FAERS Safety Report 17575204 (Version 2)
Quarter: 2020Q1

REPORT INFORMATION
  Report Type: Spontaneous
  Country: PL (occurrence: PL)
  Receive Date: 20200324
  Receipt Date: 20200327
  Transmission Date: 20200409
  Serious: Yes (Death)
  Sender: FDA-Public Use
  Company Number: PL-TEVA-2020-PL-1206782

PATIENT
  Age: 82 Year
  Sex: Female

DRUGS (9)
  1. TRIFAS COR [Concomitant]
  2. POLTRAM COMBO [Concomitant]
     Active Substance: ACETAMINOPHEN\TRAMADOL HYDROCHLORIDE
  3. ACARD [Concomitant]
     Active Substance: ASPIRIN
  4. LORISTA [Concomitant]
     Active Substance: LOSARTAN POTASSIUM
  5. METHOTREXATE. [Suspect]
     Active Substance: METHOTREXATE
     Indication: RHEUMATOID ARTHRITIS
     Dosage: 20 MG
     Route: 058
     Dates: end: 20191222
  6. KETONAL [Concomitant]
  7. METYPRED [Concomitant]
     Active Substance: METHYLPREDNISOLONE
     Dosage: 12 MG
  8. MILURIT [Concomitant]
     Active Substance: ALLOPURINOL
  9. CONTROLOC [Concomitant]
     Active Substance: PANTOPRAZOLE SODIUM

REACTIONS (6)
  - Thrombocytopenia [Fatal]
  - Bacterial sepsis [Fatal]
  - Upper respiratory tract infection [Fatal]
  - Clostridium difficile colitis [Fatal]
  - Acute kidney injury [Fatal]
  - Neutropenia [Fatal]

NARRATIVE: CASE EVENT DATE: 20191226
